FAERS Safety Report 13023710 (Version 1)
Quarter: 2016Q4

REPORT INFORMATION
  Report Type: Spontaneous
  Country: US (occurrence: US)
  Receive Date: 20161213
  Receipt Date: 20161213
  Transmission Date: 20170207
  Serious: No
  Sender: FDA-Public Use
  Company Number: None

PATIENT
  Age: 40 Year
  Sex: Female
  Weight: 152.1 kg

DRUGS (11)
  1. VITAMIN D [Concomitant]
     Active Substance: CHOLECALCIFEROL
  2. ACETAZOLAMIDE. [Concomitant]
     Active Substance: ACETAZOLAMIDE
  3. GABAPENTIN. [Concomitant]
     Active Substance: GABAPENTIN
  4. METAFORMIN [Concomitant]
  5. C-PAP MACHINE [Concomitant]
     Active Substance: DEVICE
  6. PIOGLITAZONE MFG ACCORD [Suspect]
     Active Substance: PIOGLITAZONE
     Indication: DIABETES MELLITUS
     Dosage: ?          QUANTITY:1 TABLET(S);?
     Route: 048
     Dates: end: 20140307
  7. TOPIRAMATE. [Concomitant]
     Active Substance: TOPIRAMATE
  8. FERROUS SULFATE. [Concomitant]
     Active Substance: FERROUS SULFATE
  9. LISINOPRIL. [Concomitant]
     Active Substance: LISINOPRIL
  10. MECLIZINE [Concomitant]
     Active Substance: MECLIZINE HYDROCHLORIDE
  11. HYDROCODONE [Concomitant]
     Active Substance: HYDROCODONE

REACTIONS (2)
  - Urinary tract infection [None]
  - Pollakiuria [None]

NARRATIVE: CASE EVENT DATE: 20160516
